FAERS Safety Report 6315393-8 (Version None)
Quarter: 2009Q3

REPORT INFORMATION
  Report Type: 
  Country: None (occurrence: None)
  Receive Date: 20090819
  Receipt Date: 20090812
  Transmission Date: 20100115
  Serious: No
  Sender: FDA-Public Use
  Company Number: US-GENENTECH-250400

PATIENT
  Sex: Male
  Weight: 73.469 kg

DRUGS (7)
  1. BEVACIZUMAB [Suspect]
     Indication: COLON CANCER
     Dosage: 7.5 MG/KG, Q3W
     Route: 042
     Dates: start: 20070830
  2. XELODA [Suspect]
     Indication: COLON CANCER
     Dosage: 1500 MG, BID
     Route: 048
     Dates: start: 20070719
  3. METOPROLOL [Concomitant]
     Indication: HYPERTENSION
     Dosage: 25 MG, BID
     Route: 048
     Dates: start: 20070322
  4. METFORMIN [Concomitant]
     Indication: DIABETES MELLITUS
     Dosage: 500 MG, TID
     Route: 048
     Dates: start: 20070322
  5. LISINOPRIL [Concomitant]
     Indication: HYPERTENSION
     Dosage: 20 MG, BID
     Route: 048
     Dates: start: 20070322
  6. NIACIN [Concomitant]
     Indication: HYPERCHOLESTEROLAEMIA
     Dosage: 500 MG, BID
     Route: 048
     Dates: start: 20070322
  7. PLAVIX [Concomitant]
     Indication: ANTICOAGULANT THERAPY
     Dosage: 75 MG, QD
     Route: 048
     Dates: start: 20070322

REACTIONS (1)
  - GASTROINTESTINAL ULCER [None]
